FAERS Safety Report 16886877 (Version 2)
Quarter: 2019Q4

REPORT INFORMATION
  Report Type: Spontaneous
  Country: US (occurrence: US)
  Receive Date: 20191004
  Receipt Date: 20191108
  Transmission Date: 20200122
  Serious: No
  Sender: FDA-Public Use
  Company Number: US-SUNOVION-2019SUN004037

PATIENT
  Sex: Male

DRUGS (4)
  1. GABAPENTIN. [Concomitant]
     Active Substance: GABAPENTIN
     Dosage: 600 MG, TID
     Route: 048
  2. LOSARTAN. [Concomitant]
     Active Substance: LOSARTAN
     Dosage: 50 MG, BID
     Route: 048
  3. FLUOXETINE [Concomitant]
     Active Substance: FLUOXETINE HYDROCHLORIDE
     Dosage: 20 MG, QD
     Route: 048
  4. LONHALA MAGNAIR [Suspect]
     Active Substance: GLYCOPYRROLATE
     Dosage: 25 ?G, BID
     Route: 055
     Dates: start: 20190829

REACTIONS (3)
  - Dry mouth [Unknown]
  - Dizziness [Unknown]
  - Spontaneous penile erection [Unknown]
